FAERS Safety Report 9344550 (Version 2)
Quarter: 2013Q3

REPORT INFORMATION
  Report Type: Report from Study
  Country: DE (occurrence: DE)
  Receive Date: 20130612
  Receipt Date: 20130828
  Transmission Date: 20140515
  Serious: Yes (Death, Other)
  Sender: FDA-Public Use
  Company Number: DE-ELI_LILLY_AND_COMPANY-DE201306000796

PATIENT
  Sex: Male

DRUGS (12)
  1. TERIPARATIDE [Suspect]
     Indication: OSTEOPOROSIS
     Dosage: UNK, QD
     Route: 058
     Dates: start: 20120823
  2. OXYGEN [Concomitant]
     Dosage: UNK, OTHER
  3. PREDNISOLONE [Concomitant]
     Dosage: 10 MG, UNKNOWN
  4. TRAMAL [Concomitant]
     Dosage: UNK, BID
  5. FORMOTEROL [Concomitant]
  6. SPIRIVA [Concomitant]
  7. TARGIN [Concomitant]
     Dosage: UNK, QD
  8. NOVODIGAL [Concomitant]
  9. DEKRISTOL [Concomitant]
  10. BERODUAL [Concomitant]
  11. VERLADYN [Concomitant]
  12. BRONCHICUM [Concomitant]

REACTIONS (2)
  - Pulmonary embolism [Fatal]
  - Cardiac failure [Unknown]
